FAERS Safety Report 6640800-0 (Version None)
Quarter: 2010Q1

REPORT INFORMATION
  Report Type: 
  Country: None (occurrence: None)
  Receive Date: 20100318
  Receipt Date: 20100312
  Transmission Date: 20100710
  Serious: Yes (Death, Hospitalization)
  Sender: FDA-Public Use
  Company Number: TW-ELI_LILLY_AND_COMPANY-TW201002007334

PATIENT
  Age: 68 Year
  Sex: Female

DRUGS (2)
  1. ALIMTA [Suspect]
     Indication: NON-SMALL CELL LUNG CANCER
     Dosage: UNK, UNKNOWN
  2. CISPLATIN [Concomitant]
     Dosage: UNK, UNKNOWN

REACTIONS (5)
  - ANAEMIA [None]
  - FATIGUE [None]
  - INTRA-ABDOMINAL HAEMORRHAGE [None]
  - LEUKOPENIA [None]
  - THROMBOCYTOPENIA [None]
